FAERS Safety Report 10361036 (Version 1)
Quarter: 2014Q3

REPORT INFORMATION
  Report Type: Spontaneous
  Country: JP (occurrence: None)
  Receive Date: 20140731
  Receipt Date: 20140731
  Transmission Date: 20150326
  Serious: Yes (Other)
  Sender: FDA-Public Use
  Company Number: FK201402993

PATIENT
  Age: 47 Year
  Sex: Female

DRUGS (2)
  1. PACLITAXEL. [Suspect]
     Active Substance: PACLITAXEL
     Indication: CERVIX CARCINOMA STAGE II
     Dosage: 175 MG/M2 , DAY 1 WITH AN INTERVAL OF 3 WEEKS, INTRAVENOUS (NOT OTHERWISE SPECIFIED)
     Route: 042
  2. CISPLATIN. [Suspect]
     Active Substance: CISPLATIN
     Indication: CERVIX CARCINOMA STAGE II
     Dosage: 50 MG MG/M2, DAY 1 WITH AN INTERVAL 3 WEEKS, INTRAVENOUS (NOT OTHERWISE SPECIFIED)
     Route: 042

REACTIONS (5)
  - Nausea [None]
  - Vomiting [None]
  - Oesophagitis [None]
  - Septic shock [None]
  - Leukopenia [None]
